FAERS Safety Report 15341001 (Version 2)
Quarter: 2018Q4

REPORT INFORMATION
  Report Type: Spontaneous
  Country: US (occurrence: US)
  Receive Date: 20180831
  Receipt Date: 20181001
  Transmission Date: 20190204
  Serious: No
  Sender: FDA-Public Use
  Company Number: US-SA-2018SA243458

PATIENT
  Sex: Male

DRUGS (1)
  1. APIDRA SOLOSTAR [Suspect]
     Active Substance: INSULIN GLULISINE
     Indication: DIABETES MELLITUS
     Dosage: WITH MEALS
     Route: 065
     Dates: start: 2018

REACTIONS (4)
  - Liquid product physical issue [Unknown]
  - Blood glucose increased [Unknown]
  - Device ineffective [Unknown]
  - Product quality issue [Unknown]
